FAERS Safety Report 10009621 (Version 2)
Quarter: 2014Q1

REPORT INFORMATION
  Report Type: Spontaneous
  Country: US (occurrence: US)
  Receive Date: 20140312
  Receipt Date: 20140312
  Transmission Date: 20141002
  Serious: No
  Sender: FDA-Public Use
  Company Number: US-INCYTE CORPORATION-2012IN002287

PATIENT
  Age: 80 Year
  Sex: Male
  Weight: 85.3 kg

DRUGS (16)
  1. JAKAFI [Suspect]
     Indication: MYELOFIBROSIS
     Dosage: 15 MG, BID
     Route: 048
     Dates: start: 20120203
  2. DARBEPOETIN ALFA [Concomitant]
     Dosage: 500 MCG EVERY 2 WEEKS
     Dates: start: 20111108
  3. INFLUENZA VACCINE [Concomitant]
  4. ASPIRIN [Concomitant]
     Dosage: 325 MG, QD
     Dates: start: 20110930
  5. EPOGEN [Concomitant]
     Dosage: 4,000 UNITS/ML INJECTION
     Dates: start: 20120824
  6. EXJADE [Concomitant]
     Dosage: 500 MG, QD WITH 250 MG
     Dates: start: 20130226
  7. EXJADE [Concomitant]
     Dosage: 250 MG, QD WITH 500 MG
     Dates: start: 20130226
  8. FINASTERIDE [Concomitant]
     Dosage: 5 MG, QD
     Dates: start: 20130111
  9. FOLIC ACID [Concomitant]
     Dosage: 1 MG, BID
     Dates: start: 20120824
  10. KLONOPIN [Concomitant]
     Dosage: 0.5 MG TABLET 1/2 IN AM AND 2 AT HS
     Dates: start: 20120824
  11. LIPITOR [Concomitant]
     Dosage: 10 MG, QD
     Dates: start: 20111028
  12. NITROGLYCERIN [Concomitant]
     Dosage: 0.4 MG, PRN
  13. PERCOCET [Concomitant]
     Dosage: UNK
     Dates: start: 20121126
  14. RISPERIDONE [Concomitant]
     Dosage: UNK
     Dates: start: 20130121
  15. SPIRIVA [Concomitant]
     Dosage: UNK
     Dates: start: 20120824
  16. ZOLOFT [Concomitant]
     Dosage: 150 MG, QD
     Dates: start: 20130219

REACTIONS (7)
  - Pneumonia [Unknown]
  - Malaise [Unknown]
  - Arthropathy [Unknown]
  - Gastrooesophageal reflux disease [Unknown]
  - Musculoskeletal pain [Unknown]
  - Blood count abnormal [Unknown]
  - Headache [Unknown]
